FAERS Safety Report 4976271-X (Version None)
Quarter: 2006Q2

REPORT INFORMATION
  Report Type: 
  Country: None (occurrence: None)
  Receive Date: 20060412
  Receipt Date: 20060329
  Transmission Date: 20061013
  Serious: Yes (Hospitalization)
  Sender: FDA-Public Use
  Company Number: S06-UKI-01326-01

PATIENT
  Age: 46 Year
  Sex: Male

DRUGS (1)
  1. CIPRALEX (ESCITALOPRAM) [Suspect]
     Dosage: TABLET PO
     Route: 048

REACTIONS (5)
  - HALLUCINATION, AUDITORY [None]
  - MENTAL DISORDER [None]
  - OVERDOSE [None]
  - PARANOIA [None]
  - PSYCHOTIC DISORDER [None]
